FAERS Safety Report 4497540-6 (Version None)
Quarter: 2004Q4

REPORT INFORMATION
  Report Type: 
  Country: None (occurrence: None)
  Receive Date: 20041110
  Receipt Date: 20041026
  Transmission Date: 20050328
  Serious: Yes (Life-Threatening, Hospitalization, Disabling, Other)
  Sender: FDA-Public Use
  Company Number: US-MERCK-0410USA03963

PATIENT
  Age: 65 Year
  Sex: Male

DRUGS (18)
  1. VIOXX [Suspect]
     Indication: ARTHRITIS
     Route: 048
     Dates: start: 20000225
  2. VIOXX [Suspect]
     Route: 048
  3. PLAVIX [Concomitant]
     Route: 065
  4. [THERAPY UNSPECIFIED] [Concomitant]
     Route: 065
  5. METHYLPREDNISOLONE [Concomitant]
     Route: 065
  6. IBUPROFEN [Concomitant]
     Route: 065
  7. [THERAPY UNSPECIFIED] [Concomitant]
     Route: 065
  8. NITROGLYCERIN [Concomitant]
     Route: 065
  9. ASPIRIN [Concomitant]
     Route: 065
  10. VERAPAMIL HYDROCHLORIDE [Concomitant]
     Route: 065
  11. [THERAPY UNSPECIFIED] [Concomitant]
     Route: 065
  12. LIPITOR [Concomitant]
     Route: 065
  13. THYMOL [Concomitant]
     Route: 065
  14. NAPROSYN [Concomitant]
     Route: 065
  15. CELEBREX [Concomitant]
     Route: 065
  16. PRILOSEC [Concomitant]
     Route: 065
  17. [THERAPY UNSPECIFIED] [Concomitant]
     Route: 065
  18. ATENOLOL [Concomitant]
     Route: 065

REACTIONS (3)
  - ARTERIAL OCCLUSIVE DISEASE [None]
  - BACK DISORDER [None]
  - CHEST PAIN [None]
